FAERS Safety Report 8824569 (Version 1)
Quarter: 2012Q4

REPORT INFORMATION
  Report Type: 
  Country: FR (occurrence: FR)
  Receive Date: 20121004
  Receipt Date: 20121004
  Transmission Date: 20130627
  Serious: Yes (Hospitalization)
  Sender: FDA-Public Use
  Company Number: FR-ASTRAZENECA-2012SE75454

PATIENT
  Age: 76 Year
  Sex: Female

DRUGS (3)
  1. CRESTOR [Suspect]
     Route: 048
     Dates: start: 201111, end: 201208
  2. BONVIVA [Concomitant]
  3. PIASCLEDINE [Concomitant]

REACTIONS (4)
  - Balance disorder [Recovering/Resolving]
  - Paraparesis [Recovering/Resolving]
  - Asthenia [Recovering/Resolving]
  - Muscular weakness [Recovering/Resolving]
